FAERS Safety Report 9401854 (Version 1)
Quarter: 2013Q3

REPORT INFORMATION
  Report Type: Spontaneous
  Country: SE (occurrence: SE)
  Receive Date: 20130716
  Receipt Date: 20130716
  Transmission Date: 20140515
  Serious: Yes (Life-Threatening)
  Sender: FDA-Public Use
  Company Number: SE-JNJFOC-20130708207

PATIENT
  Age: 25 Year
  Sex: Male

DRUGS (1)
  1. TRAMADOL HYDROCHLORIDE [Suspect]
     Indication: PRODUCT USED FOR UNKNOWN INDICATION
     Route: 065
     Dates: end: 20130207

REACTIONS (2)
  - Loss of consciousness [Recovered/Resolved]
  - Convulsion [Recovered/Resolved]
